FAERS Safety Report 5339064-X (Version None)
Quarter: 2007Q2

REPORT INFORMATION
  Report Type: 
  Country: None (occurrence: None)
  Receive Date: 20070530
  Receipt Date: 20070518
  Transmission Date: 20071010
  Serious: Yes (Other)
  Sender: FDA-Public Use
  Company Number: US-PFIZER INC-2007030055

PATIENT
  Sex: Female
  Weight: 66.2 kg

DRUGS (8)
  1. CHANTIX [Suspect]
     Indication: SMOKING CESSATION THERAPY
     Route: 048
     Dates: start: 20070101, end: 20070101
  2. CREON [Concomitant]
     Route: 048
  3. PLAVIX [Concomitant]
     Route: 048
  4. TRICOR [Concomitant]
     Route: 048
  5. ACTOS [Concomitant]
     Route: 048
  6. NOVOLOG [Concomitant]
  7. SYNTHROID [Concomitant]
     Route: 048
  8. FOSAMAX [Concomitant]
     Route: 048

REACTIONS (9)
  - BLOOD GLUCOSE DECREASED [None]
  - DIABETES MELLITUS INADEQUATE CONTROL [None]
  - DRUG EFFECT DECREASED [None]
  - DYSPNOEA [None]
  - NAUSEA [None]
  - PNEUMONIA [None]
  - PYREXIA [None]
  - RETCHING [None]
  - VOMITING [None]
